FAERS Safety Report 6669322-8 (Version None)
Quarter: 2010Q2

REPORT INFORMATION
  Report Type: 
  Country: None (occurrence: None)
  Receive Date: 20100406
  Receipt Date: 20100405
  Transmission Date: 20101027
  Serious: Yes (Hospitalization)
  Sender: FDA-Public Use
  Company Number: A0405744A

PATIENT
  Age: 65 Year
  Sex: Male
  Weight: 117.3 kg

DRUGS (6)
  1. AVANDIA [Suspect]
     Indication: TYPE 2 DIABETES MELLITUS
     Dosage: 4MG TWICE PER DAY
     Route: 048
     Dates: start: 20021001
  2. GLUCOVANCE [Concomitant]
     Route: 048
  3. NORVASC [Concomitant]
     Route: 048
  4. ENALAPRIL MALEATE [Concomitant]
     Route: 048
  5. ATENOLOL [Concomitant]
     Route: 048
  6. TRICOR [Concomitant]

REACTIONS (6)
  - FATIGUE [None]
  - MUSCLE SPASMS [None]
  - MYOCARDIAL INFARCTION [None]
  - OEDEMA PERIPHERAL [None]
  - URINE ANALYSIS ABNORMAL [None]
  - WEIGHT INCREASED [None]
